FAERS Safety Report 14031303 (Version 1)
Quarter: 2017Q4

REPORT INFORMATION
  Report Type: Other
  Country: NL (occurrence: NL)
  Receive Date: 20171003
  Receipt Date: 20171003
  Transmission Date: 20180321
  Serious: Yes (Other)
  Sender: FDA-Public Use
  Company Number: NL-ALSI-201700315

PATIENT
  Age: 4 Year
  Sex: Male

DRUGS (5)
  1. HALOTHANE. [Concomitant]
     Active Substance: HALOTHANE
  2. FENTANYL. [Concomitant]
     Active Substance: FENTANYL
  3. NITROUS OXIDE. [Suspect]
     Active Substance: NITROUS OXIDE
     Route: 055
  4. NITROGEN. [Suspect]
     Active Substance: NITROGEN
     Indication: CRYOTHERAPY
     Route: 036
  5. OXYGEN. [Concomitant]
     Active Substance: OXYGEN

REACTIONS (3)
  - Off label use [Recovered/Resolved]
  - Air embolism [Recovered/Resolved]
  - Drug interaction [Recovered/Resolved]
